FAERS Safety Report 18578028 (Version 1)
Quarter: 2020Q4

REPORT INFORMATION
  Report Type: Spontaneous
  Country: US (occurrence: US)
  Receive Date: 20201204
  Receipt Date: 20201204
  Transmission Date: 20210114
  Serious: No
  Sender: FDA-Public Use
  Company Number: US-B.I. PHARMACEUTICALS,INC./RIDGEFIELD-2020-BI-065784

PATIENT
  Age: 65 Year
  Sex: Male

DRUGS (3)
  1. METFORMIN [Concomitant]
     Active Substance: METFORMIN HYDROCHLORIDE
     Indication: TYPE 2 DIABETES MELLITUS
     Dosage: 1000MG IN THE MORNING AND 500MG IN THE EVENING
  2. JARDIANCE [Suspect]
     Active Substance: EMPAGLIFLOZIN
     Indication: TYPE 2 DIABETES MELLITUS
     Dosage: 25MG ONCE A DAY
     Dates: start: 202001
  3. LOSARTAN. [Concomitant]
     Active Substance: LOSARTAN
     Indication: HYPERTENSION
     Dosage: 25MG ONCE A DAY

REACTIONS (3)
  - Blood glucose abnormal [Recovered/Resolved]
  - Drug ineffective [Unknown]
  - Product counterfeit [Unknown]

NARRATIVE: CASE EVENT DATE: 202010
